FAERS Safety Report 6763977-5 (Version None)
Quarter: 2010Q2

REPORT INFORMATION
  Report Type: 
  Country: None (occurrence: None)
  Receive Date: 20100610
  Receipt Date: 20100604
  Transmission Date: 20101027
  Serious: Yes (Other)
  Sender: FDA-Public Use
  Company Number: US-JNJFOC-20100503364

PATIENT
  Age: 11 Year
  Sex: Male
  Weight: 44.45 kg

DRUGS (1)
  1. CHILDREN'S MOTRIN [Suspect]
     Indication: LYMPH NODE PAIN
     Route: 048

REACTIONS (3)
  - DYSPNOEA [None]
  - PRODUCT QUALITY ISSUE [None]
  - URTICARIA [None]
